FAERS Safety Report 16818269 (Version 3)
Quarter: 2019Q3

REPORT INFORMATION
  Report Type: Spontaneous
  Country: US (occurrence: US)
  Receive Date: 20190917
  Receipt Date: 20190930
  Transmission Date: 20191005
  Serious: Yes (Other)
  Sender: FDA-Public Use
  Company Number: PHEH2019US037975

PATIENT
  Sex: Female

DRUGS (1)
  1. MAYZENT [Suspect]
     Active Substance: SIPONIMOD
     Indication: SECONDARY PROGRESSIVE MULTIPLE SCLEROSIS
     Dosage: 2 MG, QD
     Route: 048

REACTIONS (12)
  - Chest pain [Unknown]
  - Paraesthesia [Unknown]
  - Chills [Unknown]
  - Muscular weakness [Unknown]
  - Cardiac flutter [Unknown]
  - Dyspnoea [Unknown]
  - Fatigue [Unknown]
  - Pain in extremity [Unknown]
  - Headache [Not Recovered/Not Resolved]
  - Tremor [Recovered/Resolved]
  - Nausea [Unknown]
  - Syncope [Unknown]
